FAERS Safety Report 24226561 (Version 2)
Quarter: 2024Q3

REPORT INFORMATION
  Report Type: Spontaneous
  Country: TW (occurrence: TW)
  Receive Date: 20240820
  Receipt Date: 20240829
  Transmission Date: 20241017
  Serious: Yes (Other)
  Sender: SANDOZ
  Company Number: TW-002147023-NVSC2024TW162174

PATIENT
  Age: 86 Year
  Sex: Female
  Weight: 60 kg

DRUGS (1)
  1. EXELON [Suspect]
     Active Substance: RIVASTIGMINE TARTRATE
     Indication: Product used for unknown indication
     Dosage: UNK,(1 PATCH PER DAY)
     Route: 062
     Dates: end: 20240804

REACTIONS (3)
  - Drug abuse [Recovering/Resolving]
  - Nightmare [Recovered/Resolved]
  - Medication error [Recovering/Resolving]

NARRATIVE: CASE EVENT DATE: 20240803
